FAERS Safety Report 4995852-0 (Version None)
Quarter: 2006Q2

REPORT INFORMATION
  Report Type: 
  Country: None (occurrence: None)
  Receive Date: 20060503
  Receipt Date: 20060425
  Transmission Date: 20061013
  Serious: Yes (Hospitalization, Other)
  Sender: FDA-Public Use
  Company Number: HQWYE418021MAR06

PATIENT
  Age: 57 Year
  Sex: Male

DRUGS (7)
  1. VENLAFAXINE HCL [Suspect]
     Indication: DEPRESSION
     Dosage: 75 MG 1X PER 1 DAY ORAL
     Route: 048
     Dates: start: 20050428, end: 20060315
  2. BROTIZOLAM (BROTIZOLAM) [Concomitant]
  3. METHYCOBAL (MECOBALAMIN) [Concomitant]
  4. AMARYL [Concomitant]
  5. ACTOS [Concomitant]
  6. METFORMIN [Concomitant]
  7. PRAVASTATIN [Concomitant]

REACTIONS (11)
  - ANXIETY [None]
  - CONDITION AGGRAVATED [None]
  - DECREASED APPETITE [None]
  - DIABETES MELLITUS [None]
  - DIABETIC NEUROPATHY [None]
  - FATIGUE [None]
  - FEAR [None]
  - HYPOCHONDRIASIS [None]
  - PANIC DISORDER [None]
  - SOCIAL AVOIDANT BEHAVIOUR [None]
  - VOMITING [None]
